FAERS Safety Report 8966702 (Version 4)
Quarter: 2013Q1

REPORT INFORMATION
  Report Type: Spontaneous
  Country: US (occurrence: US)
  Receive Date: 20121217
  Receipt Date: 20130314
  Transmission Date: 20140127
  Serious: Yes (Hospitalization, Other)
  Sender: FDA-Public Use
  Company Number: US-JNJFOC-20121204709

PATIENT
  Age: 26 Year
  Sex: Male

DRUGS (2)
  1. REMICADE [Suspect]
     Indication: CROHN^S DISEASE
     Dosage: RECEIVED LAST INFUSION ON APPROXIMATELY 11-OCT-2012.
     Route: 042
     Dates: start: 201210
  2. REMICADE [Suspect]
     Indication: CROHN^S DISEASE
     Route: 042

REACTIONS (3)
  - Hepatobiliary scan abnormal [Recovering/Resolving]
  - Liver abscess [Recovering/Resolving]
  - Dyskinesia [Unknown]
